FAERS Safety Report 18643877 (Version 1)
Quarter: 2020Q4

REPORT INFORMATION
  Report Type: Spontaneous
  Country: US (occurrence: US)
  Receive Date: 20201221
  Receipt Date: 20201221
  Transmission Date: 20210114
  Serious: No
  Sender: FDA-Public Use
  Company Number: None

PATIENT
  Age: 48 Year
  Sex: Male
  Weight: 88.6 kg

DRUGS (4)
  1. DEXAMETHASONE 10MG IV TWICE 7 HOURS APART [Concomitant]
     Dates: start: 20200813, end: 20200813
  2. GAMMAGARD [Suspect]
     Active Substance: HUMAN IMMUNOGLOBULIN G
     Indication: GUILLAIN-BARRE SYNDROME
     Dosage: ?          OTHER FREQUENCY:2 DOSES 24H APART;?
     Route: 042
     Dates: start: 20200813, end: 20200814
  3. GAMMAGARD [Suspect]
     Active Substance: HUMAN IMMUNOGLOBULIN G
     Indication: EVIDENCE BASED TREATMENT
     Dosage: ?          OTHER FREQUENCY:2 DOSES 24H APART;?
     Route: 042
     Dates: start: 20200813, end: 20200814
  4. MANNITOL 70G THEN 50G 7 HOURS LATER [Concomitant]
     Dates: start: 20200813, end: 20200813

REACTIONS (2)
  - Brain oedema [None]
  - Urinary incontinence [None]

NARRATIVE: CASE EVENT DATE: 20200813
